FAERS Safety Report 8886832 (Version 1)
Quarter: 2012Q4

REPORT INFORMATION
  Report Type: 
  Country: US (occurrence: US)
  Receive Date: 20121105
  Receipt Date: 20121105
  Transmission Date: 20130627
  Serious: No
  Sender: FDA-Public Use
  Company Number: US-PFIZER INC-K201101186

PATIENT
  Age: 63 Year
  Sex: Female
  Weight: 70.3 kg

DRUGS (4)
  1. MENEST [Suspect]
     Indication: HORMONE REPLACEMENT THERAPY
     Dosage: 0.625 mg, 1x/day
     Route: 048
     Dates: start: 1996, end: 2005
  2. MENEST [Suspect]
     Dosage: 0.625 mg, 1x/day
     Route: 048
     Dates: start: 2005
  3. FROVATRIPTAN [Concomitant]
     Indication: MIGRAINE
     Dosage: UNK
  4. PROMETHAZINE [Concomitant]
     Indication: MIGRAINE
     Dosage: UNK

REACTIONS (7)
  - Muscle contractions involuntary [Not Recovered/Not Resolved]
  - Haemorrhage [Not Recovered/Not Resolved]
  - Joint stiffness [Not Recovered/Not Resolved]
  - Muscle spasms [Not Recovered/Not Resolved]
  - Pain in extremity [Not Recovered/Not Resolved]
  - Hot flush [Not Recovered/Not Resolved]
  - Migraine [Not Recovered/Not Resolved]
